FAERS Safety Report 10100859 (Version 1)
Quarter: 2014Q2

REPORT INFORMATION
  Report Type: Spontaneous
  Country: US (occurrence: US)
  Receive Date: 20140423
  Receipt Date: 20140423
  Transmission Date: 20141212
  Serious: No
  Sender: FDA-Public Use
  Company Number: US-009507513-1404USA009435

PATIENT
  Sex: Male

DRUGS (12)
  1. PRINIVIL [Suspect]
     Route: 048
  2. COZAAR [Concomitant]
     Dosage: 50 MG, QD
     Route: 048
  3. ABILIFY [Concomitant]
     Dosage: 5 MG, QD AT BEDTIME
     Route: 048
  4. DISULFIRAM [Concomitant]
     Dosage: UNK MG, UNK
  5. VIBRA-TABS [Concomitant]
     Dosage: UNK, BID
     Route: 048
  6. FOLVITE [Concomitant]
     Dosage: 1 MG, QD
     Route: 048
  7. THERAVIM M [Concomitant]
     Dosage: 1 TAB, QD
     Route: 048
  8. COMMIT [Concomitant]
     Dosage: 4 MG, PRN.INSIDE CHEEK AS NEEDED FOR SMOKING CESSATION (CURRENTLY 10 GUM/DAY)
     Route: 048
  9. PAXIL [Concomitant]
     Dosage: 10 MG, QD AT BED TIME
     Route: 048
  10. INDERAL [Concomitant]
     Dosage: 10 MG, BID
     Route: 048
  11. VIAGRA [Concomitant]
     Dosage: 100 MG, QD AS NEEDED. 30 MIN TO 4 HOURS BEFORE INTERCOURSE
     Route: 048
  12. NALTREXONE HYDROCHLORIDE [Suspect]
     Dosage: 50 MG, QD
     Route: 048

REACTIONS (1)
  - Drug hypersensitivity [Unknown]
